FAERS Safety Report 6360818-5 (Version None)
Quarter: 2009Q3

REPORT INFORMATION
  Report Type: 
  Country: None (occurrence: None)
  Receive Date: 20090918
  Receipt Date: 20090904
  Transmission Date: 20100115
  Serious: Yes (Other)
  Sender: FDA-Public Use
  Company Number: PL-ROCHE-652728

PATIENT
  Sex: Male
  Weight: 79 kg

DRUGS (8)
  1. PEGASYS [Suspect]
     Indication: HEPATITIS C
     Dosage: DISCONTINUED. FREQ: EVERY 7 DAYS
     Route: 058
     Dates: start: 20081003, end: 20090814
  2. RIBAVIRIN [Suspect]
     Indication: HEPATITIS C
     Route: 048
     Dates: start: 20081003, end: 20090821
  3. ENCORTON [Suspect]
     Indication: LIVER TRANSPLANT
     Route: 048
     Dates: start: 20080414
  4. GRANOCYTE [Concomitant]
     Indication: NEUTROPENIA
     Dosage: FREQ: EVERY 7 DAYS
     Route: 058
     Dates: start: 20081003, end: 20090731
  5. ADVAGRAF [Concomitant]
     Indication: LIVER TRANSPLANT
     Dosage: FREQ: EVERY 24 HOURS
     Route: 048
     Dates: start: 20080909
  6. PROPRANOLOL [Concomitant]
     Dosage: FREQ: EVERY 12 HOURS
     Route: 048
     Dates: start: 20081030
  7. URSO FALK [Concomitant]
     Indication: LIVER TRANSPLANT
     Dosage: FREQ: EVERY 12 HOURS
     Route: 048
     Dates: start: 20080414
  8. CALCIFEDIOL [Concomitant]
     Indication: PROPHYLAXIS
     Route: 048
     Dates: start: 20080414

REACTIONS (2)
  - MESENTERIC VEIN THROMBOSIS [None]
  - SPLENIC VEIN THROMBOSIS [None]
